FAERS Safety Report 6135944-6 (Version None)
Quarter: 2009Q1

REPORT INFORMATION
  Report Type: 
  Country: None (occurrence: None)
  Receive Date: 20090329
  Receipt Date: 20090121
  Transmission Date: 20090719
  Serious: No
  Sender: FDA-Public Use
  Company Number: US-BAUSCH-2009BL000287

PATIENT
  Age: 69 Year
  Sex: Female

DRUGS (1)
  1. ALBUTEROL SULFATE [Suspect]
     Indication: ASTHMA
     Route: 049
     Dates: start: 20070101, end: 20070101

REACTIONS (3)
  - ASTHMA [None]
  - BRONCHOSPASM [None]
  - WHEEZING [None]
